FAERS Safety Report 23450064 (Version 1)
Quarter: 2024Q1

REPORT INFORMATION
  Report Type: Spontaneous
  Country: UY (occurrence: UY)
  Receive Date: 20240129
  Receipt Date: 20240129
  Transmission Date: 20240409
  Serious: Yes (Other)
  Sender: FDA-Public Use
  Company Number: UY-PBT-008934

PATIENT
  Age: 50 Year
  Sex: Male

DRUGS (19)
  1. TACROLIMUS [Suspect]
     Active Substance: TACROLIMUS
     Indication: Prophylaxis against transplant rejection
     Route: 065
  2. MYCOPHENOLATE MOFETIL [Interacting]
     Active Substance: MYCOPHENOLATE MOFETIL
     Indication: Prophylaxis against transplant rejection
     Route: 065
  3. CYCLOSPORINE [Interacting]
     Active Substance: CYCLOSPORINE
     Indication: Prophylaxis against transplant rejection
     Dosage: 50 MG AT 8 AM AND 75 MG AT 8 PM
     Route: 065
  4. CANNABIDIOL [Interacting]
     Active Substance: CANNABIDIOL
     Indication: Pain
     Dosage: FASTING CONDITIONS
     Route: 060
  5. PREDNISONE [Suspect]
     Active Substance: PREDNISONE
     Indication: Prophylaxis against transplant rejection
     Route: 065
  6. GABAPENTIN [Concomitant]
     Active Substance: GABAPENTIN
     Indication: Neuralgia
     Route: 065
  7. GABAPENTIN [Concomitant]
     Active Substance: GABAPENTIN
     Indication: Neurological symptom
     Route: 065
  8. CYCLOSPORINE [Interacting]
     Active Substance: CYCLOSPORINE
     Indication: Prophylaxis against transplant rejection
     Dosage: 100 MG AT 8 AM AND 100 MG AT 8 PM
     Route: 065
  9. CANNABIDIOL [Interacting]
     Active Substance: CANNABIDIOL
     Indication: Pain
     Route: 060
  10. CANNABIDIOL [Interacting]
     Active Substance: CANNABIDIOL
     Indication: Pain
     Route: 060
  11. MYCOPHENOLATE MOFETIL [Interacting]
     Active Substance: MYCOPHENOLATE MOFETIL
     Indication: Prophylaxis against transplant rejection
     Dosage: 1/1  ON  DAY 9
     Route: 065
  12. MYCOPHENOLATE MOFETIL [Interacting]
     Active Substance: MYCOPHENOLATE MOFETIL
     Indication: Prophylaxis against transplant rejection
     Dosage: 1/1 ON DAY 16
     Route: 065
  13. MYCOPHENOLATE MOFETIL [Interacting]
     Active Substance: MYCOPHENOLATE MOFETIL
     Indication: Prophylaxis against transplant rejection
     Dosage: 1/1 ON DAY 23
     Route: 065
  14. MYCOPHENOLATE MOFETIL [Interacting]
     Active Substance: MYCOPHENOLATE MOFETIL
     Indication: Prophylaxis against transplant rejection
     Dosage: 1/1 ON  DAY 30
     Route: 065
  15. MYCOPHENOLATE MOFETIL [Interacting]
     Active Substance: MYCOPHENOLATE MOFETIL
     Indication: Prophylaxis against transplant rejection
     Dosage: 1/1 ON DAY 37
     Route: 065
  16. MYCOPHENOLATE MOFETIL [Interacting]
     Active Substance: MYCOPHENOLATE MOFETIL
     Indication: Prophylaxis against transplant rejection
     Dosage: 1/1  ON DAY 44
     Route: 065
  17. MYCOPHENOLATE MOFETIL [Interacting]
     Active Substance: MYCOPHENOLATE MOFETIL
     Indication: Prophylaxis against transplant rejection
     Dosage: 1/1 ON DAY 52
     Route: 065
  18. MYCOPHENOLATE MOFETIL [Interacting]
     Active Substance: MYCOPHENOLATE MOFETIL
     Indication: Prophylaxis against transplant rejection
     Dosage: 1/1 ON DAY 55
     Route: 065
  19. CANNABIDIOL [Interacting]
     Active Substance: CANNABIDIOL
     Indication: Pain
     Route: 048

REACTIONS (5)
  - Drug interaction [Unknown]
  - Neurotoxicity [Unknown]
  - Renal artery stenosis [Recovered/Resolved]
  - Neuralgia [Unknown]
  - Drug level decreased [Recovered/Resolved]
